FAERS Safety Report 9891415 (Version 1)
Quarter: 2014Q1

REPORT INFORMATION
  Report Type: Spontaneous
  Country: CH (occurrence: None)
  Receive Date: 20140210
  Receipt Date: 20140210
  Transmission Date: 20141002
  Serious: Yes (Other)
  Sender: FDA-Public Use
  Company Number: 2014030472

PATIENT
  Age: 61 Year
  Sex: Female

DRUGS (11)
  1. FRAGMIN [Suspect]
     Indication: PROPHYLAXIS
     Route: 058
     Dates: start: 20131230
  2. CIPRALEX [Suspect]
     Indication: ANXIETY DISORDER
     Route: 048
  3. KLACID [Suspect]
     Indication: SEPSIS
     Route: 042
     Dates: start: 20131230, end: 20140106
  4. SERETIDE(FLUTICASONE PROPIONATE, SALMETROL XINAFOATE) [Concomitant]
  5. VENTOLIN(SALBUTAMOL) [Concomitant]
  6. SPIRIVA(TIOTROPIUM BROMIDE) [Concomitant]
  7. LYRICA(PREGABALIN) [Concomitant]
  8. TRUXAL(CHLORPROTHIXENE HYDROCHLORIDE) [Concomitant]
  9. AMARYL(GLIMEPIRIDE) [Concomitant]
  10. TAZOBAC(PIPERACILLIN SODIUM, TAZOBACTAM SODIUM) [Concomitant]
  11. TAMIFUL(OSELTAMIVIR) [Concomitant]

REACTIONS (1)
  - Acute myocardial infarction [None]
